FAERS Safety Report 13923695 (Version 1)
Quarter: 2017Q3

REPORT INFORMATION
  Report Type: Spontaneous
  Country: US (occurrence: US)
  Receive Date: 20170830
  Receipt Date: 20170830
  Transmission Date: 20171127
  Serious: Yes (Disabling)
  Sender: FDA-Public Use
  Company Number: None

PATIENT
  Sex: Male
  Weight: 81 kg

DRUGS (7)
  1. ASPIRIN. [Concomitant]
     Active Substance: ASPIRIN
  2. LISINOPRIL. [Concomitant]
     Active Substance: LISINOPRIL
  3. TAMSULOSIN HCL [Concomitant]
     Active Substance: TAMSULOSIN
  4. DUTATERINE [Concomitant]
  5. OXYGEN. [Suspect]
     Active Substance: OXYGEN
     Indication: ANAESTHESIA PROCEDURE
     Dates: start: 20150204, end: 20150204
  6. ATORVASTIN CALCIUM TABLETS (40 MG) [Concomitant]
     Active Substance: ATORVASTATIN CALCIUM
  7. METFORMIN [Concomitant]
     Active Substance: METFORMIN HYDROCHLORIDE

REACTIONS (2)
  - Dysphonia [None]
  - Oropharyngeal pain [None]

NARRATIVE: CASE EVENT DATE: 20150204
